FAERS Safety Report 8125854-7 (Version None)
Quarter: 2012Q1

REPORT INFORMATION
  Report Type: 
  Country: None (occurrence: None)
  Receive Date: 20120206
  Receipt Date: 20120121
  Transmission Date: 20120608
  Serious: No
  Sender: FDA-Public Use
  Company Number: 2012-00017

PATIENT
  Age: 64 Year
  Sex: Female

DRUGS (1)
  1. ZICAM COLD REMEDY PLUS LIQUI LOZ [Suspect]
     Indication: NASOPHARYNGITIS
     Dosage: 4-5 LOZENGES DAILY
     Dates: start: 20120118, end: 20120121

REACTIONS (1)
  - AGEUSIA [None]
